FAERS Safety Report 8425071-7 (Version None)
Quarter: 2012Q2

REPORT INFORMATION
  Report Type: 
  Country: None (occurrence: None)
  Receive Date: 20120605
  Receipt Date: 20120605
  Transmission Date: 20120825
  Serious: Yes (Hospitalization)
  Sender: FDA-Public Use
  Company Number: None

PATIENT
  Sex: Female
  Weight: 84.8226 kg

DRUGS (2)
  1. CYCLOBENZAPRINE [Suspect]
     Indication: NECK PAIN
     Dosage: 5 MG 1 2X DAY
     Dates: start: 20120403, end: 20120405
  2. CYCLOBENZAPRINE [Suspect]
     Indication: MUSCULOSKELETAL PAIN
     Dosage: 5 MG 1 2X DAY
     Dates: start: 20120403, end: 20120405

REACTIONS (1)
  - CONVULSION [None]
